FAERS Safety Report 23038550 (Version 2)
Quarter: 2023Q4

REPORT INFORMATION
  Report Type: Spontaneous
  Country: FR (occurrence: FR)
  Receive Date: 20231006
  Receipt Date: 20231011
  Transmission Date: 20240109
  Serious: No
  Sender: FDA-Public Use
  Company Number: FR-JNJFOC-20230962607

PATIENT

DRUGS (1)
  1. NICORETTE [Suspect]
     Active Substance: NICOTINE
     Indication: Product used for unknown indication
     Dosage: 2 MG (AT LEAST 10 YEARS)
     Route: 065

REACTIONS (3)
  - Nicotine dependence [Not Recovered/Not Resolved]
  - Cough [Unknown]
  - Intentional product use issue [Not Recovered/Not Resolved]
